FAERS Safety Report 5930932-4 (Version None)
Quarter: 2008Q4

REPORT INFORMATION
  Report Type: 
  Country: None (occurrence: None)
  Receive Date: 20081002
  Receipt Date: 20080730
  Transmission Date: 20090506
  Serious: Yes (Hospitalization, Disabling, Other)
  Sender: FDA-Public Use
  Company Number: 2008-0016617

PATIENT
  Age: 46 Year
  Sex: Male

DRUGS (13)
  1. TRUVADA [Suspect]
     Indication: ACQUIRED IMMUNODEFICIENCY SYNDROME
     Dosage: 1 DOSAGE FORMS, 1 IN 1 D, ORAL
     Route: 048
     Dates: start: 20040101, end: 20071120
  2. NORVIR [Concomitant]
  3. ATAZANAVIR SULFATE [Concomitant]
  4. AMBIEN [Concomitant]
  5. CLONOPIN [Concomitant]
  6. COUMADIN [Concomitant]
  7. LEVOCARNITINE (LEVOCARNITINE) [Concomitant]
  8. HYDROCHLOROTHIAZIDE [Concomitant]
  9. LISINOPRIL [Concomitant]
  10. TRICOR [Concomitant]
  11. LORATADINE [Concomitant]
  12. VITAMIN B12 [Concomitant]
  13. L-GLUTAMINE (GLUTAMIC ACID) [Concomitant]

REACTIONS (1)
  - RENAL TUBULAR NECROSIS [None]
